FAERS Safety Report 17414590 (Version 6)
Quarter: 2020Q1

REPORT INFORMATION
  Report Type: Spontaneous
  Country: US (occurrence: US)
  Receive Date: 20200213
  Receipt Date: 20200320
  Transmission Date: 20200409
  Serious: Yes (Other)
  Sender: FDA-Public Use
  Company Number: US-AMGEN-USASP2020023706

PATIENT
  Sex: Male

DRUGS (4)
  1. EPOGEN [Suspect]
     Active Substance: ERYTHROPOIETIN
     Indication: END STAGE RENAL DISEASE
  2. ARANESP [Suspect]
     Active Substance: DARBEPOETIN ALFA
     Indication: NEPHROGENIC ANAEMIA
     Dosage: UNK
     Route: 065
  3. EPOGEN [Suspect]
     Active Substance: ERYTHROPOIETIN
     Indication: NEPHROGENIC ANAEMIA
     Dosage: 20000 UNITS, 3 TIMES/WK
     Route: 065
     Dates: start: 2019
  4. ARANESP [Suspect]
     Active Substance: DARBEPOETIN ALFA
     Indication: END STAGE RENAL DISEASE

REACTIONS (2)
  - Therapeutic product effect incomplete [Unknown]
  - Aplasia pure red cell [Unknown]
